FAERS Safety Report 8791109 (Version 1)
Quarter: 2012Q4

REPORT INFORMATION
  Report Type: Spontaneous
  Country: US (occurrence: None)
  Receive Date: 20120913
  Receipt Date: 20120913
  Transmission Date: 20130627
  Serious: Yes (Life-Threatening, Hospitalization)
  Sender: FDA-Public Use
  Company Number: None

PATIENT
  Age: 71 Year
  Sex: Male
  Weight: 65.9 kg

DRUGS (4)
  1. DIGOXIN [Suspect]
     Indication: ATRIAL FIBRILLATION
     Route: 048
     Dates: start: 19991014, end: 20120719
  2. DIGOXIN [Suspect]
     Indication: CONGESTIVE HEART FAILURE
     Route: 048
     Dates: start: 19991014, end: 20120719
  3. DIGOXIN [Suspect]
     Indication: ATRIAL FIBRILLATION
     Dosage: Second dose 
Abate: N/A
Event Reappeared: No
     Route: 048
     Dates: start: 19991011
  4. DIGOXIN [Suspect]
     Indication: CONGESTIVE HEART FAILURE
     Dosage: Second dose 
Abate: N/A
Event Reappeared: No
     Route: 048
     Dates: start: 19991011

REACTIONS (2)
  - Bradycardia [None]
  - Toxicity to various agents [None]
